FAERS Safety Report 6935025-5 (Version None)
Quarter: 2010Q3

REPORT INFORMATION
  Report Type: 
  Country: None (occurrence: None)
  Receive Date: 20100822
  Receipt Date: 20100809
  Transmission Date: 20110219
  Serious: Yes (Other)
  Sender: FDA-Public Use
  Company Number: PHHY2010JP50012

PATIENT
  Age: 28 Year
  Sex: Male

DRUGS (8)
  1. SIMULECT [Suspect]
     Indication: RENAL TRANSPLANT
     Dosage: 20 MG
  2. TACROLIMUS [Concomitant]
     Indication: RENAL TRANSPLANT
  3. CELL CEPT [Concomitant]
     Indication: RENAL TRANSPLANT
  4. MYCOPHENOLATE MOFETIL [Concomitant]
  5. MIZORIBINE [Concomitant]
  6. STEROIDS NOS [Concomitant]
  7. PLASMAPHERESIS [Concomitant]
  8. RITUXIMAB [Concomitant]

REACTIONS (6)
  - ANAPHYLACTIC SHOCK [None]
  - ANTIBODY TEST ABNORMAL [None]
  - BLOOD CREATININE INCREASED [None]
  - BONE MARROW FAILURE [None]
  - CYTOMEGALOVIRUS INFECTION [None]
  - KIDNEY TRANSPLANT REJECTION [None]
